FAERS Safety Report 9889621 (Version 4)
Quarter: 2014Q2

REPORT INFORMATION
  Report Type: Spontaneous
  Country: BR (occurrence: BR)
  Receive Date: 20140211
  Receipt Date: 20140422
  Transmission Date: 20141212
  Serious: Yes (Other)
  Sender: FDA-Public Use
  Company Number: BR-ALLERGAN-1402441US

PATIENT
  Sex: Female

DRUGS (1)
  1. BOTOX [Suspect]
     Indication: PRODUCT USED FOR UNKNOWN INDICATION
     Dosage: 26 UNITS, SINGLE
     Dates: start: 20140129, end: 20140129

REACTIONS (9)
  - Hyperaemia [Recovered/Resolved]
  - Eczema [Recovered/Resolved]
  - Eyelid oedema [Not Recovered/Not Resolved]
  - Anaphylactic reaction [Recovered/Resolved]
  - Localised oedema [Recovered/Resolved]
  - Injection site pain [Recovered/Resolved]
  - Urticaria [Recovered/Resolved]
  - Facial pain [Not Recovered/Not Resolved]
  - Face oedema [Not Recovered/Not Resolved]
